FAERS Safety Report 20742845 (Version 1)
Quarter: 2022Q2

REPORT INFORMATION
  Report Type: Report from Study
  Country: CA (occurrence: CA)
  Receive Date: 20220424
  Receipt Date: 20220424
  Transmission Date: 20220721
  Serious: Yes (Other)
  Sender: FDA-Public Use
  Company Number: CA-ABBVIE-22K-028-4367045-00

PATIENT
  Sex: Female

DRUGS (1)
  1. HUMIRA [Suspect]
     Active Substance: ADALIMUMAB
     Indication: Rheumatoid arthritis
     Route: 058
     Dates: start: 20210304

REACTIONS (12)
  - Vascular stent stenosis [Unknown]
  - Erythema [Unknown]
  - Frustration tolerance decreased [Unknown]
  - Blood alkaline phosphatase increased [Unknown]
  - Swelling [Unknown]
  - Pruritus [Unknown]
  - Arthropathy [Recovering/Resolving]
  - Diarrhoea [Not Recovered/Not Resolved]
  - Weight decreased [Unknown]
  - Back disorder [Unknown]
  - Musculoskeletal chest pain [Unknown]
  - Depression [Unknown]

NARRATIVE: CASE EVENT DATE: 20210101
